FAERS Safety Report 12625959 (Version 5)
Quarter: 2017Q1

REPORT INFORMATION
  Report Type: Report from Study
  Country: US (occurrence: US)
  Receive Date: 20160805
  Receipt Date: 20170205
  Transmission Date: 20170428
  Serious: Yes (Hospitalization, Other)
  Sender: FDA-Public Use
  Company Number: US-BIOGEN-2016BI00273907

PATIENT
  Age: 44 Year
  Sex: Female

DRUGS (11)
  1. PLEGRIDY [Suspect]
     Active Substance: PEGINTERFERON BETA-1A
     Route: 058
     Dates: end: 201601
  2. PLEGRIDY [Suspect]
     Active Substance: PEGINTERFERON BETA-1A
     Route: 058
     Dates: end: 201602
  3. PLEGRIDY [Suspect]
     Active Substance: PEGINTERFERON BETA-1A
     Route: 058
     Dates: start: 20160222
  4. AMBIEN [Concomitant]
     Active Substance: ZOLPIDEM TARTRATE
     Indication: PRODUCT USED FOR UNKNOWN INDICATION
     Route: 065
  5. PLEGRIDY [Suspect]
     Active Substance: PEGINTERFERON BETA-1A
     Indication: MULTIPLE SCLEROSIS
     Route: 058
     Dates: start: 20151214, end: 20151214
  6. PLEGRIDY [Suspect]
     Active Substance: PEGINTERFERON BETA-1A
     Route: 058
  7. PLEGRIDY [Suspect]
     Active Substance: PEGINTERFERON BETA-1A
     Route: 058
     Dates: start: 20151214
  8. PLEGRIDY [Suspect]
     Active Substance: PEGINTERFERON BETA-1A
     Route: 058
     Dates: end: 20151228
  9. PREDNISONE. [Concomitant]
     Active Substance: PREDNISONE
     Indication: PRODUCT USED FOR UNKNOWN INDICATION
     Route: 065
  10. CLONAZEPAM. [Concomitant]
     Active Substance: CLONAZEPAM
     Indication: PRODUCT USED FOR UNKNOWN INDICATION
     Route: 065
  11. VITAMIN D [Concomitant]
     Active Substance: CHOLECALCIFEROL
     Indication: IRON DEFICIENCY
     Route: 065

REACTIONS (53)
  - Blindness transient [Recovered/Resolved]
  - Ocular hyperaemia [Recovered/Resolved]
  - Peripheral swelling [Not Recovered/Not Resolved]
  - Back pain [Not Recovered/Not Resolved]
  - Hypoaesthesia [Recovered/Resolved]
  - Insomnia [Not Recovered/Not Resolved]
  - Central nervous system lesion [Not Recovered/Not Resolved]
  - Musculoskeletal pain [Recovered/Resolved]
  - Injection site pain [Recovered/Resolved]
  - Injection site rash [Not Recovered/Not Resolved]
  - Body temperature increased [Not Recovered/Not Resolved]
  - Neurodegenerative disorder [Not Recovered/Not Resolved]
  - Gait disturbance [Recovered/Resolved]
  - Contusion [Unknown]
  - Photophobia [Recovered/Resolved]
  - Fatigue [Recovered/Resolved]
  - Paraesthesia [Not Recovered/Not Resolved]
  - Eye pain [Not Recovered/Not Resolved]
  - Eye pruritus [Recovered/Resolved]
  - Migraine [Recovered/Resolved]
  - Burning sensation [Recovered/Resolved]
  - Dry skin [Recovered/Resolved]
  - Skin exfoliation [Unknown]
  - Musculoskeletal stiffness [Not Recovered/Not Resolved]
  - Pain [Recovered/Resolved]
  - Hypersensitivity [Recovered/Resolved]
  - Motor dysfunction [Not Recovered/Not Resolved]
  - Pyrexia [Recovered/Resolved]
  - Injection site bruising [Recovered/Resolved]
  - Influenza like illness [Recovered/Resolved]
  - Malaise [Not Recovered/Not Resolved]
  - Muscle spasms [Not Recovered/Not Resolved]
  - Anxiety [Not Recovered/Not Resolved]
  - Swelling face [Recovered/Resolved]
  - Pain in extremity [Recovered/Resolved]
  - Spinal osteoarthritis [Unknown]
  - Myalgia [Recovered/Resolved]
  - Injection site pruritus [Recovered/Resolved]
  - Multiple sclerosis relapse [Not Recovered/Not Resolved]
  - Eye swelling [Recovered/Resolved]
  - Lacrimation increased [Recovered/Resolved]
  - Rash papular [Not Recovered/Not Resolved]
  - Procedural anxiety [Not Recovered/Not Resolved]
  - Skin mass [Recovered/Resolved]
  - Multiple sclerosis [Unknown]
  - Injection site urticaria [Recovered/Resolved]
  - Injection site erythema [Unknown]
  - Injection site swelling [Recovered/Resolved]
  - Vomiting [Recovered/Resolved]
  - Musculoskeletal disorder [Not Recovered/Not Resolved]
  - General symptom [Recovered/Resolved]
  - Injection site reaction [Recovered/Resolved]
  - Headache [Unknown]

NARRATIVE: CASE EVENT DATE: 201512
